FAERS Safety Report 25358897 (Version 2)
Quarter: 2025Q2

REPORT INFORMATION
  Report Type: Spontaneous
  Country: CH (occurrence: CH)
  Receive Date: 20250526
  Receipt Date: 20250609
  Transmission Date: 20250716
  Serious: Yes (Other)
  Sender: SANDOZ
  Company Number: CH-SANDOZ-SDZ2025CH034633

PATIENT

DRUGS (1)
  1. MYCOPHENOLATE MOFETIL [Suspect]
     Active Substance: MYCOPHENOLATE MOFETIL
     Indication: Mixed connective tissue disease
     Route: 065

REACTIONS (4)
  - Mixed connective tissue disease [Unknown]
  - Condition aggravated [Unknown]
  - Infection susceptibility increased [Unknown]
  - Product use in unapproved indication [Unknown]
